FAERS Safety Report 8309542-X (Version None)
Quarter: 2012Q2

REPORT INFORMATION
  Report Type: 
  Country: None (occurrence: None)
  Receive Date: 20120425
  Receipt Date: 20120418
  Transmission Date: 20120825
  Serious: No
  Sender: FDA-Public Use
  Company Number: US-PFIZER INC-2012097425

PATIENT
  Sex: Female
  Weight: 77 kg

DRUGS (6)
  1. VISTARIL [Suspect]
     Indication: PANIC DISORDER
     Dosage: 50 MG, UNK
     Dates: start: 20110601, end: 20120101
  2. EFFEXOR [Suspect]
     Indication: PANIC DISORDER
     Dosage: UNK
     Dates: start: 20110601, end: 20120101
  3. NEURONTIN [Suspect]
     Indication: PANIC DISORDER
     Dosage: 100 MG, 4X/DAY
     Dates: start: 20120101, end: 20120101
  4. WELLBUTRIN [Suspect]
     Indication: PANIC DISORDER
     Dosage: UNK
     Dates: start: 20120101, end: 20120101
  5. PAXIL [Suspect]
     Indication: PANIC DISORDER
     Dosage: UNK
     Dates: start: 20110101, end: 20110101
  6. KLONOPIN [Suspect]
     Indication: PANIC DISORDER
     Dosage: UNK

REACTIONS (2)
  - DRUG INEFFECTIVE [None]
  - BLOOD TEST ABNORMAL [None]
